FAERS Safety Report 7512312-3 (Version None)
Quarter: 2011Q2

REPORT INFORMATION
  Report Type: 
  Country: None (occurrence: None)
  Receive Date: 20110531
  Receipt Date: 20110524
  Transmission Date: 20111010
  Serious: Yes (Death)
  Sender: FDA-Public Use
  Company Number: JP-GENZYME-FLUD-1000619

PATIENT
  Sex: Male
  Weight: 55 kg

DRUGS (17)
  1. FLUDARA [Suspect]
     Indication: PREMEDICATION
     Dosage: UNK
     Route: 065
     Dates: start: 20091013, end: 20091018
  2. METHYLPREDNISOLONE [Concomitant]
     Indication: PROPHYLAXIS AGAINST GRAFT VERSUS HOST DISEASE
     Dosage: UNK
     Route: 065
     Dates: start: 20091013, end: 20091030
  3. TACROLIMUS [Concomitant]
     Indication: PROPHYLAXIS AGAINST GRAFT VERSUS HOST DISEASE
     Dosage: UNK
     Route: 065
     Dates: start: 20091018, end: 20091029
  4. CEFOZOPRAN HYDROCHLORIDE [Concomitant]
     Indication: INFECTION PROPHYLAXIS
     Dosage: UNK
     Route: 065
     Dates: start: 20091016, end: 20091027
  5. RED BLOOD CELLS, CONCENTRATED [Concomitant]
     Indication: ACUTE MYELOID LEUKAEMIA
     Dosage: UNK
     Route: 065
     Dates: start: 20091020, end: 20091029
  6. THYMOGLOBULIN [Suspect]
     Indication: PREMEDICATION
     Dosage: 50 MG, QD
     Route: 042
     Dates: start: 20091018, end: 20091020
  7. MELPHALAN HYDROCHLORIDE [Suspect]
     Indication: PREMEDICATION
     Dosage: UNK
     Route: 065
     Dates: start: 20091017, end: 20091018
  8. LANSOPRAZOLE [Concomitant]
     Indication: HAEMORRHAGE PROPHYLAXIS
     Dosage: UNK
     Route: 065
     Dates: start: 20091009, end: 20091029
  9. TEICOPLANIN [Concomitant]
     Indication: INFECTION PROPHYLAXIS
     Dosage: UNK
     Route: 065
     Dates: start: 20091016, end: 20091026
  10. THYMOGLOBULIN [Suspect]
     Indication: ACUTE MYELOID LEUKAEMIA
  11. LENOGRASTIM [Concomitant]
     Indication: INFECTION PROPHYLAXIS
     Dosage: UNK
     Route: 065
     Dates: start: 20091026, end: 20091029
  12. FLUDARA [Suspect]
     Indication: ACUTE MYELOID LEUKAEMIA
  13. CYTARABINE [Concomitant]
     Indication: PREMEDICATION
     Dosage: UNK
     Route: 065
     Dates: start: 20091013, end: 20091016
  14. ITRACONAZOLE [Concomitant]
     Indication: INFECTION PROPHYLAXIS
     Dosage: UNK
     Route: 065
     Dates: start: 20091012, end: 20091029
  15. SULFAMETHOXAZOLE W [Concomitant]
     Indication: INFECTION PROPHYLAXIS
     Dosage: UNK
     Route: 065
     Dates: start: 20091009, end: 20091017
  16. GANCICLOVIR [Concomitant]
     Indication: INFECTION PROPHYLAXIS
     Dosage: UNK
     Route: 065
     Dates: start: 20091012, end: 20091016
  17. PLATELETS, CONCENTRATED [Concomitant]
     Indication: ACUTE MYELOID LEUKAEMIA
     Dosage: UNK
     Route: 065
     Dates: start: 20091011, end: 20091029

REACTIONS (3)
  - PNEUMONIA [None]
  - PYREXIA [None]
  - RESPIRATORY FAILURE [None]
